FAERS Safety Report 25264474 (Version 1)
Quarter: 2025Q2

REPORT INFORMATION
  Report Type: Spontaneous
  Country: US (occurrence: US)
  Receive Date: 20250502
  Receipt Date: 20250502
  Transmission Date: 20250717
  Serious: No
  Sender: ABBVIE
  Company Number: US-ABBVIE-6249026

PATIENT
  Age: 34 Year
  Sex: Female
  Weight: 58 kg

DRUGS (13)
  1. BOTOX [Suspect]
     Active Substance: ONABOTULINUMTOXINA
     Indication: Migraine prophylaxis
     Route: 058
     Dates: start: 202409, end: 202409
  2. PEPCID [Concomitant]
     Active Substance: FAMOTIDINE
     Indication: Dyspepsia
     Route: 048
     Dates: start: 20250412
  3. REGLAN [Concomitant]
     Active Substance: METOCLOPRAMIDE HYDROCHLORIDE
     Indication: Nausea
     Route: 048
     Dates: start: 20250409
  4. PROGESTERONE [Concomitant]
     Active Substance: PROGESTERONE
     Indication: Pregnancy
     Dosage: DOSAGE: 50 MG/ML OIL
     Route: 030
     Dates: start: 20250314
  5. ESTRADIOL [Concomitant]
     Active Substance: ESTRADIOL
     Indication: Pregnancy
     Route: 048
     Dates: start: 20250226
  6. VYVANSE [Concomitant]
     Active Substance: LISDEXAMFETAMINE DIMESYLATE
     Indication: Binge eating
     Route: 048
     Dates: start: 202411, end: 20250412
  7. GONAL-F [Concomitant]
     Active Substance: FOLLITROPIN
     Indication: In vitro fertilisation
     Route: 030
     Dates: start: 20250207, end: 20250216
  8. MENOPUR [Concomitant]
     Active Substance: FOLLITROPIN\LUTEINIZING HORMONE
     Indication: In vitro fertilisation
     Dosage: DOSE - 75 UNITS
     Route: 058
     Dates: start: 20250207, end: 20250215
  9. GANIRELIX [Concomitant]
     Active Substance: GANIRELIX
     Indication: In vitro fertilisation
     Route: 058
     Dates: start: 20250210, end: 20250215
  10. LUPRON [Concomitant]
     Active Substance: LEUPROLIDE ACETATE
     Indication: In vitro fertilisation
     Dosage: TRIGGER SHOT
     Route: 058
     Dates: start: 20250207, end: 20250207
  11. ELETRIPTAN [Suspect]
     Active Substance: ELETRIPTAN
     Indication: Migraine
     Route: 048
     Dates: start: 2023, end: 2024
  12. NURTEC ODT [Suspect]
     Active Substance: RIMEGEPANT SULFATE
     Indication: Migraine
     Route: 048
     Dates: start: 20250320, end: 20250320
  13. DRAMAMINE [Suspect]
     Active Substance: DIMENHYDRINATE
     Indication: Migraine
     Route: 048

REACTIONS (1)
  - Maternal exposure during pregnancy [Unknown]
